FAERS Safety Report 4277981-2 (Version None)
Quarter: 2004Q1

REPORT INFORMATION
  Report Type: 
  Country: None (occurrence: None)
  Receive Date: 20040120
  Receipt Date: 20040102
  Transmission Date: 20041129
  Serious: Yes (Hospitalization)
  Sender: FDA-Public Use
  Company Number: 171349

PATIENT
  Age: 53 Year
  Sex: Female
  Weight: 67.586 kg

DRUGS (20)
  1. AVONEX [Suspect]
     Indication: MULTIPLE SCLEROSIS
     Dosage: 30 MCG IM
     Route: 030
     Dates: start: 20011029, end: 20031001
  2. AVONEX [Suspect]
     Indication: MULTIPLE SCLEROSIS
     Dosage: 20 MCG QW IM
     Route: 030
     Dates: start: 20031001
  3. HYDROCODONE BITARTRATE [Concomitant]
  4. VIOXX [Concomitant]
  5. CLARITIN [Concomitant]
  6. DYAZIDE [Concomitant]
  7. LORAZEPAM [Concomitant]
  8. VALTREX [Concomitant]
  9. METHOCARBAMOL [Concomitant]
  10. NEXIUM [Concomitant]
  11. DANTRIUM [Concomitant]
  12. LASIX [Concomitant]
  13. LOTREL [Concomitant]
  14. SONATA [Concomitant]
  15. AMITRIPTYLINE [Concomitant]
  16. PAXIL [Concomitant]
  17. LIPITOR [Concomitant]
  18. DURAGESIC [Concomitant]
  19. NEURONTIN [Concomitant]
  20. METHADONE HCL [Concomitant]

REACTIONS (10)
  - CYSTITIS HAEMORRHAGIC [None]
  - CYSTITIS INTERSTITIAL [None]
  - CYSTOCELE [None]
  - HAEMATOCRIT DECREASED [None]
  - HAEMOGLOBIN DECREASED [None]
  - MEAN CELL HAEMOGLOBIN CONCENTRATION DECREASED [None]
  - MEAN CELL HAEMOGLOBIN DECREASED [None]
  - METAPLASIA [None]
  - RED BLOOD CELL COUNT DECREASED [None]
  - WHITE BLOOD CELL COUNT INCREASED [None]
